FAERS Safety Report 4312089-9 (Version None)
Quarter: 2004Q1

REPORT INFORMATION
  Report Type: 
  Country: None (occurrence: None)
  Receive Date: 20040304
  Receipt Date: 20040304
  Transmission Date: 20041129
  Serious: Yes (Life-Threatening)
  Sender: FDA-Public Use
  Company Number: None

PATIENT
  Age: 16 Year
  Sex: Female
  Weight: 63.5036 kg

DRUGS (2)
  1. ACCUTANE [Suspect]
     Indication: ACNE
     Dates: start: 20021224, end: 20030515
  2. ACCUTANE [Suspect]
     Indication: ACNE
     Dates: start: 20040210, end: 20040228

REACTIONS (5)
  - ABNORMAL BEHAVIOUR [None]
  - BIPOLAR DISORDER [None]
  - DEPRESSION [None]
  - EMOTIONAL DISORDER [None]
  - IRRITABILITY [None]
